FAERS Safety Report 21564651 (Version 2)
Quarter: 2022Q4

REPORT INFORMATION
  Report Type: Spontaneous
  Country: US (occurrence: US)
  Receive Date: 20221108
  Receipt Date: 20221117
  Transmission Date: 20230113
  Serious: Yes (Death, Hospitalization, Other)
  Sender: FDA-Public Use
  Company Number: US-BAXTER-2022BAX023867

PATIENT
  Sex: Female

DRUGS (1)
  1. DIANEAL FOR PERITONEAL DIALYSIS [Suspect]
     Active Substance: ANHYDROUS DEXTROSE\CALCIUM CHLORIDE\MAGNESIUM CHLORIDE\SODIUM CHLORIDE\SODIUM LACTATE
     Indication: End stage renal disease
     Dosage: UNK
     Route: 033
     Dates: start: 20181109

REACTIONS (4)
  - Pancreatic carcinoma [Fatal]
  - Porphyria [Not Recovered/Not Resolved]
  - Skin discolouration [Not Recovered/Not Resolved]
  - Iron overload [Not Recovered/Not Resolved]
